FAERS Safety Report 11821130 (Version 4)
Quarter: 2017Q1

REPORT INFORMATION
  Report Type: Spontaneous
  Country: US (occurrence: US)
  Receive Date: 20151210
  Receipt Date: 20170109
  Transmission Date: 20170428
  Serious: No
  Sender: FDA-Public Use
  Company Number: US-JNJFOC-20150805829

PATIENT
  Age: 78 Year
  Sex: Male

DRUGS (14)
  1. CALCIUM CITRATE [Concomitant]
     Active Substance: CALCIUM CITRATE
  2. MUCINEX [Concomitant]
     Active Substance: GUAIFENESIN
  3. LIPITOR [Concomitant]
     Active Substance: ATORVASTATIN CALCIUM
  4. VITAMIN D [Concomitant]
     Active Substance: CHOLECALCIFEROL
  5. OMEPRAZOLE. [Concomitant]
     Active Substance: OMEPRAZOLE
  6. VALACYCLOVIR [Concomitant]
     Active Substance: VALACYCLOVIR HYDROCHLORIDE
  7. CO-Q10 [Concomitant]
  8. FISH OIL [Concomitant]
     Active Substance: FISH OIL
  9. ELIQUIS [Concomitant]
     Active Substance: APIXABAN
  10. ASPIRIN. [Concomitant]
     Active Substance: ASPIRIN
  11. IMBRUVICA [Suspect]
     Active Substance: IBRUTINIB
     Indication: CHRONIC LYMPHOCYTIC LEUKAEMIA
     Route: 048
     Dates: start: 20161026
  12. TOPROL XL [Concomitant]
     Active Substance: METOPROLOL SUCCINATE
  13. IMBRUVICA [Suspect]
     Active Substance: IBRUTINIB
     Indication: CHRONIC LYMPHOCYTIC LEUKAEMIA
     Route: 048
     Dates: start: 20140515
  14. VITAMIN C [Concomitant]
     Active Substance: ASCORBIC ACID

REACTIONS (6)
  - Acne [Unknown]
  - Contusion [Unknown]
  - Skin discolouration [Unknown]
  - Incorrect dose administered [Not Recovered/Not Resolved]
  - Rash erythematous [Unknown]
  - Off label use [Unknown]

NARRATIVE: CASE EVENT DATE: 20140515
